FAERS Safety Report 9007337 (Version 2)
Quarter: 2013Q3

REPORT INFORMATION
  Report Type: Spontaneous
  Country: JP (occurrence: JP)
  Receive Date: 20130110
  Receipt Date: 20130703
  Transmission Date: 20140515
  Serious: Yes (Hospitalization, Other)
  Sender: FDA-Public Use
  Company Number: PHHY2012JP097787

PATIENT
  Age: 47 Year
  Sex: Male

DRUGS (8)
  1. TEGRETOL [Suspect]
     Indication: TRIGEMINAL NEURALGIA
     Dosage: UNK UKN, UNK
     Route: 048
  2. TEGRETOL [Suspect]
     Dosage: 200 MG, UNK
     Route: 048
     Dates: start: 20121005
  3. TEGRETOL [Suspect]
     Dosage: 100 MG, TID
     Route: 048
     Dates: start: 20121019
  4. TEGRETOL [Suspect]
     Dosage: 86 DF, UNK
     Route: 048
     Dates: start: 20121024, end: 20121024
  5. LOXOPROFEN [Concomitant]
     Dosage: 4 DF, UNK
     Route: 048
     Dates: start: 20121024, end: 20121024
  6. ZYPREXA [Concomitant]
     Dosage: 80 DF, UNK
     Route: 048
     Dates: start: 20121024, end: 20121024
  7. SORELMON [Concomitant]
     Dosage: 10 DF, UNK
     Route: 048
     Dates: start: 20121024, end: 20121024
  8. BLOCKLIN [Concomitant]
     Indication: TRIGEMINAL NEURALGIA
     Route: 048

REACTIONS (10)
  - Altered state of consciousness [Recovered/Resolved]
  - Drug level increased [Recovered/Resolved]
  - Myoclonus [Recovered/Resolved]
  - Pupillary reflex impaired [Recovered/Resolved]
  - Suicide attempt [Recovered/Resolved]
  - Pneumonia aspiration [Recovered/Resolved]
  - Toxicity to various agents [Recovering/Resolving]
  - Overdose [Recovered/Resolved]
  - Hepatic function abnormal [Unknown]
  - Faeces discoloured [Unknown]
